FAERS Safety Report 8391995-2 (Version None)
Quarter: 2012Q2

REPORT INFORMATION
  Report Type: 
  Country: None (occurrence: None)
  Receive Date: 20120529
  Receipt Date: 20120525
  Transmission Date: 20120825
  Serious: Yes (Hospitalization)
  Sender: FDA-Public Use
  Company Number: GB-ROCHE-1071815

PATIENT
  Sex: Female
  Weight: 55.2 kg

DRUGS (13)
  1. SYMBICORT [Concomitant]
  2. ACETAMINOPHEN [Concomitant]
  3. ITRACONAZOLE [Concomitant]
  4. OMEPRAZOLE [Concomitant]
  5. IPRATROPIUM BROMIDE [Concomitant]
  6. MONTELUKAST [Concomitant]
  7. ALBUTEROL [Concomitant]
  8. XOLAIR [Suspect]
     Indication: PRODUCT USED FOR UNKNOWN INDICATION
     Route: 058
  9. QVAR 40 [Concomitant]
  10. CLARITHROMYCIN [Concomitant]
  11. PREDNISOLONE [Concomitant]
  12. ALENDRONATE SODIUM [Concomitant]
  13. CETIRIZINE [Concomitant]

REACTIONS (2)
  - ASTHMA [None]
  - SYNCOPE [None]
